FAERS Safety Report 15864393 (Version 1)
Quarter: 2019Q1

REPORT INFORMATION
  Report Type: Spontaneous
  Country: US (occurrence: US)
  Receive Date: 20190124
  Receipt Date: 20190124
  Transmission Date: 20190417
  Serious: No
  Sender: FDA-Public Use
  Company Number: US-ASTRAZENECA-2018SF71847

PATIENT
  Age: 22691 Day
  Sex: Female
  Weight: 77.1 kg

DRUGS (1)
  1. BYDUREON BCISE [Suspect]
     Active Substance: EXENATIDE
     Indication: TYPE 2 DIABETES MELLITUS
     Route: 058
     Dates: start: 20181220

REACTIONS (6)
  - Injection site haemorrhage [Unknown]
  - Intentional product misuse [Recovered/Resolved]
  - Wrong technique in device usage process [Recovered/Resolved]
  - Injection site extravasation [Unknown]
  - Underdose [Recovered/Resolved]
  - Device issue [Unknown]

NARRATIVE: CASE EVENT DATE: 20181227
